FAERS Safety Report 5757575-X (Version None)
Quarter: 2008Q2

REPORT INFORMATION
  Report Type: 
  Country: None (occurrence: None)
  Receive Date: 20080603
  Receipt Date: 20080523
  Transmission Date: 20081010
  Serious: Yes (Other)
  Sender: FDA-Public Use
  Company Number: US-PFIZER INC-2008045042

PATIENT
  Sex: Male

DRUGS (1)
  1. LIPITOR [Suspect]
     Indication: CARDIAC OPERATION
     Route: 048
     Dates: start: 20080501, end: 20080501

REACTIONS (1)
  - ACTIVITIES OF DAILY LIVING IMPAIRED [None]
